FAERS Safety Report 9362900 (Version 1)
Quarter: 2013Q2

REPORT INFORMATION
  Report Type: Spontaneous
  Country: US (occurrence: None)
  Receive Date: 20130618
  Receipt Date: 20130618
  Transmission Date: 20140414
  Serious: Yes (Death)
  Sender: FDA-Public Use
  Company Number: 2013-234

PATIENT
  Age: 51 Year
  Sex: Male

DRUGS (2)
  1. FAZACLO (CLOZAPINE, USP) ODT (ORAL DISINTEGRATING TABLET) [Suspect]
     Route: 048
     Dates: start: 20100216, end: 20130115
  2. CLOZAPINE [Suspect]
     Route: 048
     Dates: start: 20130115, end: 20130124

REACTIONS (3)
  - Neoplasm malignant [None]
  - Terminal state [None]
  - Haemorrhage [None]
